FAERS Safety Report 18700675 (Version 1)
Quarter: 2021Q1

REPORT INFORMATION
  Report Type: Spontaneous
  Country: US (occurrence: US)
  Receive Date: 20210104
  Receipt Date: 20210104
  Transmission Date: 20210419
  Serious: Yes (Death)
  Sender: FDA-Public Use
  Company Number: None

PATIENT
  Age: 80 Year
  Sex: Male
  Weight: 71.1 kg

DRUGS (9)
  1. ASPIRIN. [Concomitant]
     Active Substance: ASPIRIN
  2. LIPITOR [Concomitant]
     Active Substance: ATORVASTATIN CALCIUM
  3. PROLIA [Concomitant]
     Active Substance: DENOSUMAB
  4. PREDNISONE. [Suspect]
     Active Substance: PREDNISONE
     Indication: PROSTATE CANCER
     Route: 048
     Dates: start: 20201202, end: 20201213
  5. DOCETAXEL. [Concomitant]
     Active Substance: DOCETAXEL
  6. METOPROLOL. [Concomitant]
     Active Substance: METOPROLOL
  7. DECADRON [Concomitant]
     Active Substance: DEXAMETHASONE
  8. LISINOPRIL. [Concomitant]
     Active Substance: LISINOPRIL
  9. ABIRATERONE. [Suspect]
     Active Substance: ABIRATERONE ACETATE
     Indication: PROSTATE CANCER
     Route: 048
     Dates: start: 20201202, end: 20201213

REACTIONS (1)
  - Death [None]

NARRATIVE: CASE EVENT DATE: 20201213
